FAERS Safety Report 9841624 (Version 1)
Quarter: 2013Q4

REPORT INFORMATION
  Report Type: Spontaneous
  Country: US (occurrence: None)
  Receive Date: 20131219
  Receipt Date: 20131219
  Transmission Date: 20140711
  Serious: Yes (Death)
  Sender: FDA-Public Use
  Company Number: 163-20785-12113280

PATIENT
  Age: 67 Year
  Sex: Female

DRUGS (15)
  1. THALOMID [Suspect]
     Indication: PLASMA CELL MYELOMA
     Dosage: 1 IN 1 D
     Route: 048
     Dates: start: 201003
  2. FLUVIRIN [Concomitant]
  3. FIBERCON [Concomitant]
  4. KLOR-CON [Concomitant]
  5. HYZAAR [Concomitant]
  6. LASIX [Concomitant]
  7. METFORMIN [Concomitant]
  8. STOOL SOFTENER [Concomitant]
  9. MULTI 50 [Concomitant]
  10. B COMPLEX [Concomitant]
  11. PREMARIN [Concomitant]
  12. PREVACID [Concomitant]
  13. ATENOLOL [Concomitant]
  14. COUMADIN [Concomitant]
  15. ASPIRIN [Concomitant]

REACTIONS (2)
  - Plasma cell myeloma [None]
  - Renal failure [None]
